FAERS Safety Report 23084432 (Version 3)
Quarter: 2024Q1

REPORT INFORMATION
  Report Type: Spontaneous
  Country: CA (occurrence: CA)
  Receive Date: 20231019
  Receipt Date: 20240206
  Transmission Date: 20240409
  Serious: Yes (Other)
  Sender: FDA-Public Use
  Company Number: CA-PFIZER INC-202300328779

PATIENT
  Age: 37 Year
  Sex: Female
  Weight: 65.76 kg

DRUGS (6)
  1. XELJANZ [Suspect]
     Active Substance: TOFACITINIB CITRATE
     Indication: Colitis ulcerative
     Dosage: 10 MG, 2X/DAY
     Route: 048
     Dates: start: 20230902
  2. XELJANZ [Suspect]
     Active Substance: TOFACITINIB CITRATE
     Dosage: 5 MG, 2X/DAY
     Route: 048
     Dates: start: 202312, end: 202312
  3. XELJANZ [Suspect]
     Active Substance: TOFACITINIB CITRATE
     Dosage: 10 MG, 2X/DAY
     Route: 048
     Dates: start: 202312
  4. MESALAMINE [Concomitant]
     Active Substance: MESALAMINE
     Dosage: 4.8 G, DAILY
  5. PREDNISONE [Concomitant]
     Active Substance: PREDNISONE
     Dosage: 15 MG TAPERING OFF (HAS BEEN ON IT FOR 8MONTHS)
     Route: 065
  6. PREDNISONE [Concomitant]
     Active Substance: PREDNISONE
     Dosage: 7.5 MG, DAILY TAPERING OFF

REACTIONS (6)
  - Haematochezia [Unknown]
  - Treatment failure [Unknown]
  - Mouth ulceration [Unknown]
  - Disease recurrence [Unknown]
  - Loss of personal independence in daily activities [Unknown]
  - Weight increased [Unknown]
